FAERS Safety Report 4401503-6 (Version None)
Quarter: 2004Q3

REPORT INFORMATION
  Report Type: 
  Country: None (occurrence: None)
  Receive Date: 20040719
  Receipt Date: 20040517
  Transmission Date: 20050211
  Serious: Yes (Hospitalization)
  Sender: FDA-Public Use
  Company Number: 200415356GDDC

PATIENT
  Age: 49 Year
  Sex: Male

DRUGS (2)
  1. FUROSEMIDE [Suspect]
     Dosage: DOSE: UNK
  2. ACE INHIBITOR NOS [Concomitant]
     Dosage: DOSE: UNK

REACTIONS (13)
  - ANAEMIA [None]
  - CARCINOEMBRYONIC ANTIGEN INCREASED [None]
  - COLITIS ISCHAEMIC [None]
  - COLONIC STENOSIS [None]
  - CONSTIPATION [None]
  - DIARRHOEA [None]
  - DRUG ABUSER [None]
  - FATIGUE [None]
  - GASTROINTESTINAL DYSPLASIA [None]
  - LARGE INTESTINAL ULCER HAEMORRHAGE [None]
  - LOWER GASTROINTESTINAL HAEMORRHAGE [None]
  - OVERDOSE [None]
  - WEIGHT DECREASED [None]
